FAERS Safety Report 5811491-3 (Version None)
Quarter: 2008Q3

REPORT INFORMATION
  Report Type: 
  Country: None (occurrence: None)
  Receive Date: 20080716
  Receipt Date: 20080710
  Transmission Date: 20090109
  Serious: Yes (Hospitalization)
  Sender: FDA-Public Use
  Company Number: US-NOVOPROD-277236

PATIENT
  Age: 68 Year
  Sex: Male

DRUGS (14)
  1. NOVOLOG [Suspect]
     Indication: INSULIN-REQUIRING TYPE 2 DIABETES MELLITUS
     Dosage: 24 IU, TID (AM, NOON, PM)
     Route: 058
  2. LANTUS [Concomitant]
     Indication: INSULIN-REQUIRING TYPE 2 DIABETES MELLITUS
     Dosage: 80 IU, QD (38 UNITS AM, 42 UNITS PM)
     Route: 058
  3. ALPRAZOLAM [Concomitant]
     Indication: NEUROPATHY PERIPHERAL
     Dosage: .5 MG, PRN (PM)
     Route: 048
  4. METOLAZONE [Concomitant]
     Indication: CARDIAC DISORDER
     Dosage: 1.25 MG, PRN
     Route: 048
  5. FUROSEMIDE [Concomitant]
     Indication: CARDIAC DISORDER
     Dosage: 120 MG, BID
     Route: 048
  6. TOPROL-XL [Concomitant]
     Indication: CARDIAC DISORDER
     Dosage: 50 MG, QD (AM)
     Route: 048
  7. AMIODARONE HCL [Concomitant]
     Indication: CARDIAC DISORDER
     Dosage: 300 MG, QD (AM)
     Route: 048
  8. ALTACE [Concomitant]
     Indication: CARDIAC DISORDER
     Dosage: 10 MG, QD (AM)
     Route: 048
  9. DIGITEK [Concomitant]
     Indication: CARDIAC DISORDER
     Dosage: .125 MG, QD (AM)
     Route: 048
  10. DIOVAN                             /01319601/ [Concomitant]
     Indication: CARDIAC DISORDER
     Dosage: 80 MG, QD (AM)
     Route: 048
  11. WARFARIN SODIUM [Concomitant]
     Indication: CARDIAC DISORDER
     Dosage: 5 MG, QD (SUN, MON, WED, FRI)
     Route: 048
  12. WARFARIN SODIUM [Concomitant]
     Dosage: 2.5 MG, QD (TUE, THUR)
     Route: 048
  13. LIPITOR [Concomitant]
     Indication: HYPERLIPIDAEMIA
     Dosage: 40 MG, QD (PM)
     Route: 048
  14. ARMOUR THYROID [Concomitant]
     Indication: THYROID DISORDER
     Dosage: 135 MCG 7 TIMES A WEEK
     Route: 048

REACTIONS (3)
  - BLOOD GLUCOSE INCREASED [None]
  - DIABETIC ULCER [None]
  - MEDICATION ERROR [None]
